FAERS Safety Report 21108810 (Version 1)
Quarter: 2022Q3

REPORT INFORMATION
  Report Type: Spontaneous
  Country: JP (occurrence: JP)
  Receive Date: 20220721
  Receipt Date: 20220721
  Transmission Date: 20221027
  Serious: Yes (Death, Hospitalization, Other)
  Sender: FDA-Public Use
  Company Number: JP-BRISTOL-MYERS SQUIBB COMPANY-BMS-2016-106184

PATIENT
  Age: 67 Year
  Sex: Male

DRUGS (1)
  1. OPDIVO [Suspect]
     Active Substance: NIVOLUMAB
     Indication: Non-small cell lung cancer recurrent
     Dosage: 3 MG/KG (140 MG), Q2WK
     Route: 041
     Dates: start: 20161129, end: 20161129

REACTIONS (2)
  - Interstitial lung disease [Fatal]
  - Respiratory failure [Unknown]

NARRATIVE: CASE EVENT DATE: 20161130
